FAERS Safety Report 13374683 (Version 4)
Quarter: 2017Q4

REPORT INFORMATION
  Report Type: Report from Study
  Country: US (occurrence: US)
  Receive Date: 20170327
  Receipt Date: 20171114
  Transmission Date: 20180320
  Serious: No
  Sender: FDA-Public Use
  Company Number: US-ALEXION PHARMACEUTICALS INC.-A201702939

PATIENT
  Age: 28 Year
  Sex: Male

DRUGS (10)
  1. PENICILLIN                         /00000901/ [Concomitant]
     Active Substance: PENICILLIN G
     Indication: PROPHYLAXIS
     Dosage: 250 MG, BID
     Route: 048
     Dates: start: 20140104
  2. ATGAM [Concomitant]
     Active Substance: EQUINE THYMOCYTE IMMUNE GLOBULIN
     Indication: APLASTIC ANAEMIA
     Dosage: UNK
     Route: 065
     Dates: start: 20130430
  3. ELTROMBOPAG [Concomitant]
     Active Substance: ELTROMBOPAG
     Indication: CYTOPENIA
     Dosage: UNK
     Route: 065
     Dates: start: 20150106, end: 20150414
  4. SOLIRIS [Suspect]
     Active Substance: ECULIZUMAB
     Indication: PAROXYSMAL NOCTURNAL HAEMOGLOBINURIA
     Dosage: 900 MG, Q2W
     Route: 042
     Dates: start: 20140606, end: 20170314
  5. VITAMIN B12 [Concomitant]
     Active Substance: CYANOCOBALAMIN
     Dosage: 100 MCG, QD
     Route: 048
  6. CYCLOSPORINE. [Concomitant]
     Active Substance: CYCLOSPORINE
     Indication: APLASTIC ANAEMIA
     Dosage: UNK
     Route: 065
     Dates: start: 20130430
  7. ELTROMBOPAG [Concomitant]
     Active Substance: ELTROMBOPAG
     Indication: APLASTIC ANAEMIA
     Dosage: UNK
     Route: 065
     Dates: end: 20141014
  8. SOLIRIS [Suspect]
     Active Substance: ECULIZUMAB
     Dosage: 900 MG, EVERY 14 DAYS
     Route: 042
  9. AMBIEN [Concomitant]
     Active Substance: ZOLPIDEM TARTRATE
     Indication: INSOMNIA
     Dosage: 5 MG, PRN
     Route: 048
     Dates: start: 20160524
  10. VITAMIN B12 [Concomitant]
     Active Substance: CYANOCOBALAMIN
     Indication: VITAMIN B12 DEFICIENCY
     Dosage: 10 ?G, QD
     Route: 048
     Dates: start: 20160524

REACTIONS (27)
  - Red cell distribution width increased [Unknown]
  - Weight decreased [Unknown]
  - Mean cell haemoglobin increased [Unknown]
  - Neutrophil count decreased [Unknown]
  - Cough [Recovering/Resolving]
  - Haematocrit decreased [Unknown]
  - Reticulocyte percentage increased [Not Recovered/Not Resolved]
  - Eosinophil count decreased [Unknown]
  - Mean platelet volume increased [Unknown]
  - Decreased appetite [Unknown]
  - Jaundice [Unknown]
  - White blood cell count decreased [Unknown]
  - Red blood cell count decreased [Unknown]
  - Monocyte count decreased [Unknown]
  - Blood bilirubin increased [Unknown]
  - Influenza [Unknown]
  - Mean cell volume increased [Unknown]
  - Platelet count decreased [Unknown]
  - Reticulocyte haemoglobin equivalent [Unknown]
  - Platelet count increased [Unknown]
  - Reticulocyte count increased [Unknown]
  - Cyst [Not Recovered/Not Resolved]
  - Oral pain [Recovered/Resolved]
  - Mean cell haemoglobin concentration decreased [Unknown]
  - Lymphocyte count increased [Not Recovered/Not Resolved]
  - Palpitations [Unknown]
  - Haemoglobin decreased [Unknown]

NARRATIVE: CASE EVENT DATE: 201501
